FAERS Safety Report 7685889-5 (Version None)
Quarter: 2011Q3

REPORT INFORMATION
  Report Type: 
  Country: None (occurrence: None)
  Receive Date: 20110811
  Receipt Date: 20110802
  Transmission Date: 20111222
  Serious: Yes (Hospitalization)
  Sender: FDA-Public Use
  Company Number: 2011-2721

PATIENT
  Age: 64 Year
  Sex: Male

DRUGS (1)
  1. APO-GO AMPOULES (APO-GO) (APOMORPHINE HYDROCHLORIDE) (APOMORPHINE HYDR [Suspect]
     Indication: PRODUCT USED FOR UNKNOWN INDICATION
     Dosage: SUBCUTANEOUS
     Route: 058
     Dates: end: 20110731

REACTIONS (3)
  - BLOOD PRESSURE DECREASED [None]
  - FALL [None]
  - CONFUSIONAL STATE [None]
